FAERS Safety Report 5885333-4 (Version None)
Quarter: 2008Q3

REPORT INFORMATION
  Report Type: 
  Country: None (occurrence: None)
  Receive Date: 20080916
  Receipt Date: 20080905
  Transmission Date: 20090109
  Serious: Yes (Disabling)
  Sender: FDA-Public Use
  Company Number: GB-PFIZER INC-2008075701

PATIENT
  Age: 65 Year
  Sex: Female

DRUGS (3)
  1. CHANTIX [Suspect]
     Indication: SMOKING CESSATION THERAPY
     Route: 048
     Dates: start: 20071231, end: 20080326
  2. BENDROFLUMETHIAZIDE [Concomitant]
  3. PERINDOPRIL ERBUMINE [Concomitant]

REACTIONS (6)
  - ANXIETY [None]
  - DAYDREAMING [None]
  - MEMORY IMPAIRMENT [None]
  - MOOD ALTERED [None]
  - PANIC REACTION [None]
  - PARANOIA [None]
